FAERS Safety Report 21838996 (Version 1)
Quarter: 2023Q1

REPORT INFORMATION
  Report Type: Spontaneous
  Country: US (occurrence: None)
  Receive Date: 20230108
  Receipt Date: 20230108
  Transmission Date: 20230417
  Serious: Yes (Life-Threatening)
  Sender: FDA-Public Use
  Company Number: None

PATIENT
  Age: 64 Year
  Sex: Male

DRUGS (1)
  1. LISINOPRIL AND HYDROCHLOROTHIAZIDE [Suspect]
     Active Substance: HYDROCHLOROTHIAZIDE\LISINOPRIL
     Indication: Hypertension
     Dosage: OTHER STRENGTH : 25MG, 20MG;?OTHER QUANTITY : 25/20 MG;?FREQUENCY : DAILY;?
     Route: 048
     Dates: start: 20220321, end: 20221014

REACTIONS (4)
  - Dysphagia [None]
  - Pharyngeal swelling [None]
  - Enlarged uvula [None]
  - Angioedema [None]

NARRATIVE: CASE EVENT DATE: 20221014
